FAERS Safety Report 14673420 (Version 2)
Quarter: 2018Q2

REPORT INFORMATION
  Report Type: Spontaneous
  Country: GB (occurrence: GB)
  Receive Date: 20180323
  Receipt Date: 20180621
  Transmission Date: 20180711
  Serious: Yes (Death, Life-Threatening, Hospitalization)
  Sender: FDA-Public Use
  Company Number: GB-TEVA-2018-GB-873384

PATIENT
  Age: 81 Year
  Sex: Female
  Weight: 39 kg

DRUGS (6)
  1. AMITRIPTYLINE [Suspect]
     Active Substance: AMITRIPTYLINE
     Route: 048
     Dates: start: 2009, end: 20120211
  2. FUROSEMIDE. [Suspect]
     Active Substance: FUROSEMIDE
     Route: 048
     Dates: start: 2009, end: 20120211
  3. SIMVASTATIN. [Suspect]
     Active Substance: SIMVASTATIN
     Route: 048
     Dates: start: 2009, end: 20120211
  4. LISINOPRIL. [Suspect]
     Active Substance: LISINOPRIL
     Route: 048
     Dates: start: 2009, end: 20120211
  5. FELODIPINE. [Suspect]
     Active Substance: FELODIPINE
     Route: 065
  6. TRAMADOL HYDROCHLORIDE. [Suspect]
     Active Substance: TRAMADOL HYDROCHLORIDE
     Dosage: 500 MILLIGRAM DAILY;
     Route: 065
     Dates: start: 2009, end: 20120211

REACTIONS (13)
  - Blood alkaline phosphatase increased [Fatal]
  - Vomiting [Fatal]
  - Pain in extremity [Fatal]
  - Hypocalcaemia [Fatal]
  - Pyrexia [Fatal]
  - Anaemia [Fatal]
  - Seizure [Fatal]
  - Hypercalcaemia [Fatal]
  - Accidental overdose [Fatal]
  - Oedema peripheral [Fatal]
  - Chest pain [Fatal]
  - Dizziness [Fatal]
  - Dyspnoea [Fatal]

NARRATIVE: CASE EVENT DATE: 2009
